FAERS Safety Report 5215992-0 (Version None)
Quarter: 2007Q1

REPORT INFORMATION
  Report Type: 
  Country: None (occurrence: None)
  Receive Date: 20070118
  Receipt Date: 20070108
  Transmission Date: 20070707
  Serious: Yes (Death)
  Sender: FDA-Public Use
  Company Number: T200700011

PATIENT
  Age: 44 Year
  Sex: Female

DRUGS (5)
  1. METHADOSE [Suspect]
     Indication: PAIN
     Dosage: 20 MG, BID, ORAL
     Route: 048
     Dates: end: 20050101
  2. CELEXA [Suspect]
     Indication: MAJOR DEPRESSION
     Dosage: 60 MG, BID, ORAL; 60 MG, QD, ORAL; 60 MG, BID, ORAL; 60 MG, QD, ORAL
     Route: 048
     Dates: start: 20050101, end: 20050101
  3. CELEXA [Suspect]
     Indication: MAJOR DEPRESSION
     Dosage: 60 MG, BID, ORAL; 60 MG, QD, ORAL; 60 MG, BID, ORAL; 60 MG, QD, ORAL
     Route: 048
     Dates: start: 20050101, end: 20050101
  4. CELEXA [Suspect]
     Indication: MAJOR DEPRESSION
     Dosage: 60 MG, BID, ORAL; 60 MG, QD, ORAL; 60 MG, BID, ORAL; 60 MG, QD, ORAL
     Route: 048
     Dates: end: 20050101
  5. ALPRAZOLAM [Suspect]
     Indication: AGITATION
     Dosage: 1 MG, PRN
     Dates: end: 20050101

REACTIONS (7)
  - CONFUSIONAL STATE [None]
  - DRUG TOXICITY [None]
  - INCORRECT DOSE ADMINISTERED [None]
  - LETHARGY [None]
  - MULTIPLE DRUG OVERDOSE [None]
  - PULMONARY OEDEMA [None]
  - SUICIDAL IDEATION [None]
